FAERS Safety Report 11468599 (Version 1)
Quarter: 2015Q3

REPORT INFORMATION
  Report Type: Spontaneous
  Country: US (occurrence: None)
  Receive Date: 20150904
  Receipt Date: 20150904
  Transmission Date: 20151125
  Serious: Yes (Other)
  Sender: FDA-Public Use
  Company Number: None

PATIENT
  Age: 2 Day
  Sex: Female
  Weight: 2.2 kg

DRUGS (2)
  1. INTRALIPID [Suspect]
     Active Substance: EGG PHOSPHOLIPIDS\GLYCERIN\SOYBEAN OIL
  2. ALARIS PRIMARY TUBING [Suspect]
     Active Substance: DEVICE

REACTIONS (3)
  - Incorrect drug administration rate [None]
  - Device malfunction [None]
  - Accidental overdose [None]

NARRATIVE: CASE EVENT DATE: 20150830
